FAERS Safety Report 6828161-5 (Version None)
Quarter: 2010Q3

REPORT INFORMATION
  Report Type: 
  Country: None (occurrence: None)
  Receive Date: 20100709
  Receipt Date: 20100625
  Transmission Date: 20110219
  Serious: Yes (Other)
  Sender: FDA-Public Use
  Company Number: DE-B.I. PHARMACEUTICALS,INC./RIDGEFIELD-2010-BP-07732YA

PATIENT
  Sex: Male
  Weight: 87 kg

DRUGS (3)
  1. TAMSULOSIN HCL [Suspect]
     Indication: HYPERTONIC BLADDER
     Route: 048
     Dates: start: 20100615, end: 20100618
  2. TAMSULOSIN HCL [Suspect]
     Indication: BENIGN PROSTATIC HYPERPLASIA
  3. TAMSO-ASTELLAS (TAMSULOSIN) [Concomitant]
     Dates: start: 20080506, end: 20100608

REACTIONS (1)
  - URINARY RETENTION [None]
